FAERS Safety Report 11594927 (Version 1)
Quarter: 2015Q4

REPORT INFORMATION
  Report Type: Spontaneous
  Country: US (occurrence: US)
  Receive Date: 20151005
  Receipt Date: 20151005
  Transmission Date: 20160304
  Serious: No
  Sender: FDA-Public Use
  Company Number: US-ASTRAZENECA-2015SE93403

PATIENT
  Sex: Male

DRUGS (1)
  1. PULMICORT FLEXHALER [Suspect]
     Active Substance: BUDESONIDE
     Dosage: 1 PUFF TWICE A DAY FOR 3 DAYS
     Route: 055
     Dates: start: 201509

REACTIONS (4)
  - Device failure [Unknown]
  - Drug dose omission [Unknown]
  - Incorrect dose administered [Unknown]
  - Eye disorder [Unknown]
